FAERS Safety Report 17996219 (Version 2)
Quarter: 2023Q2

REPORT INFORMATION
  Report Type: Report from Study
  Country: DE (occurrence: DE)
  Receive Date: 20200708
  Receipt Date: 20230510
  Transmission Date: 20230721
  Serious: Yes (Hospitalization)
  Sender: FDA-Public Use
  Company Number: DE-ABBVIE-20K-062-3453241-00

PATIENT
  Sex: Female
  Weight: 99 kg

DRUGS (13)
  1. HUMIRA [Suspect]
     Active Substance: ADALIMUMAB
     Indication: Hidradenitis
     Dosage: FORM STRENGTH: 40 MILLIGRAM
     Route: 058
     Dates: start: 20190301, end: 202005
  2. HUMIRA [Suspect]
     Active Substance: ADALIMUMAB
     Indication: Rheumatoid arthritis
     Dosage: FORM STRENGTH: 40 MILLIGRAM
     Route: 058
     Dates: start: 202006
  3. HUMIRA [Suspect]
     Active Substance: ADALIMUMAB
     Indication: Psoriasis
  4. OXYCODONE [Concomitant]
     Active Substance: OXYCODONE
     Indication: Intervertebral disc protrusion
     Route: 048
     Dates: start: 2011
  5. OXYCODONE [Concomitant]
     Active Substance: OXYCODONE
     Indication: Intervertebral disc protrusion
     Route: 048
     Dates: start: 2011
  6. LEVOTHYROXINE SODIUM [Concomitant]
     Active Substance: LEVOTHYROXINE SODIUM
     Indication: Hypothyroidism
     Route: 048
     Dates: start: 2000
  7. VERAPAMIL [Concomitant]
     Active Substance: VERAPAMIL HYDROCHLORIDE
     Indication: Heart valve incompetence
     Route: 048
     Dates: start: 2005
  8. CANDESARTAN CILEXETIL [Concomitant]
     Active Substance: CANDESARTAN CILEXETIL
     Indication: Heart valve incompetence
     Route: 048
     Dates: start: 2005
  9. CANDESARTAN CILEXETIL [Concomitant]
     Active Substance: CANDESARTAN CILEXETIL
     Indication: Heart valve incompetence
     Route: 048
     Dates: start: 2005
  10. HYDROCHLOROTHIAZIDE [Concomitant]
     Active Substance: HYDROCHLOROTHIAZIDE
     Indication: Heart valve incompetence
     Route: 048
     Dates: start: 2005
  11. CLOPIDOGREL [Concomitant]
     Active Substance: CLOPIDOGREL BISULFATE
     Indication: Carotid artery stenosis
     Route: 048
     Dates: start: 2005
  12. OZEMPIC [Concomitant]
     Active Substance: SEMAGLUTIDE
     Indication: Diabetes mellitus
     Route: 058
  13. INSULIN NOS [Concomitant]
     Active Substance: INSULIN NOS
     Indication: Diabetes mellitus
     Route: 058

REACTIONS (7)
  - Mixed incontinence [Recovering/Resolving]
  - Bladder irritation [Not Recovered/Not Resolved]
  - Urinary tract infection [Not Recovered/Not Resolved]
  - Coronavirus infection [Recovered/Resolved]
  - Pneumonia staphylococcal [Recovered/Resolved]
  - Cystitis interstitial [Not Recovered/Not Resolved]
  - Lung disorder [Recovered/Resolved]

NARRATIVE: CASE EVENT DATE: 20210101
